FAERS Safety Report 8293262-4 (Version None)
Quarter: 2012Q2

REPORT INFORMATION
  Report Type: 
  Country: None (occurrence: None)
  Receive Date: 20120417
  Receipt Date: 20111013
  Transmission Date: 20120825
  Serious: No
  Sender: FDA-Public Use
  Company Number: US-ASTRAZENECA-2011SE62122

PATIENT
  Age: 65 Year
  Sex: Female
  Weight: 69.9 kg

DRUGS (6)
  1. NEXIUM [Suspect]
     Indication: GASTROOESOPHAGEAL REFLUX DISEASE
     Route: 048
     Dates: start: 19960101
  2. ATIVAN [Concomitant]
     Indication: ANXIETY
  3. CRESTOR [Concomitant]
     Indication: BLOOD CHOLESTEROL ABNORMAL
  4. CELEXA [Concomitant]
     Indication: DEPRESSION
  5. PREDNISONE [Concomitant]
     Indication: ARTHROPATHY
  6. TOPROL-XL [Suspect]
     Indication: PALPITATIONS
     Route: 048
     Dates: start: 20060101

REACTIONS (1)
  - PALPITATIONS [None]
